FAERS Safety Report 16535877 (Version 2)
Quarter: 2019Q3

REPORT INFORMATION
  Report Type: Spontaneous
  Country: US (occurrence: US)
  Receive Date: 20190705
  Receipt Date: 20190711
  Transmission Date: 20191004
  Serious: No
  Sender: FDA-Public Use
  Company Number: PHEH2019US028025

PATIENT
  Age: 8 Year
  Sex: Male
  Weight: 23.4 kg

DRUGS (1)
  1. MEKINIST [Suspect]
     Active Substance: TRAMETINIB DIMETHYL SULFOXIDE
     Indication: NEUROFIBROMATOSIS
     Dosage: 0.5 MG, QD
     Route: 048
     Dates: start: 20161130

REACTIONS (4)
  - Product use in unapproved indication [Unknown]
  - Pyrexia [Unknown]
  - Viral infection [Recovered/Resolved]
  - Vomiting [Unknown]

NARRATIVE: CASE EVENT DATE: 20190501
